FAERS Safety Report 18208471 (Version 1)
Quarter: 2020Q3

REPORT INFORMATION
  Report Type: Spontaneous
  Country: JP (occurrence: JP)
  Receive Date: 20200828
  Receipt Date: 20200828
  Transmission Date: 20201103
  Serious: Yes (Hospitalization, Other)
  Sender: FDA-Public Use
  Company Number: JP-009507513-2007JPN001083J

PATIENT
  Age: 63 Year
  Sex: Male
  Weight: 60 kg

DRUGS (9)
  1. LANSOPRAZOLE OD [Concomitant]
     Active Substance: LANSOPRAZOLE
     Indication: PROPHYLAXIS
     Dosage: 15 MILLIGRAM, QD
     Route: 048
  2. NOXAFIL [Suspect]
     Active Substance: POSACONAZOLE
     Dosage: 300 MILLIGRAM, QD
     Route: 048
     Dates: start: 20200712, end: 20200713
  3. DAIPHEN [Suspect]
     Active Substance: SULFAMETHOXAZOLE\TRIMETHOPRIM
     Indication: PROPHYLAXIS
     Dosage: 1 DOSAGE FORM, TIW
     Route: 048
     Dates: start: 202006, end: 20200713
  4. ZOLPIDEM TARTRATE. [Concomitant]
     Active Substance: ZOLPIDEM TARTRATE
     Dosage: 5 MILLIGRAM, QD
     Route: 048
  5. NOXAFIL [Suspect]
     Active Substance: POSACONAZOLE
     Dosage: 300 MILLIGRAM, QD
     Route: 048
     Dates: start: 20200717
  6. FEBURIC [Concomitant]
     Active Substance: FEBUXOSTAT
     Dosage: 20 MILLIGRAM, QD
     Route: 048
  7. MAGMITT [Concomitant]
     Active Substance: MAGNESIUM OXIDE
     Dosage: 6 TABLETS 3 TIMES
     Route: 048
  8. AMBISOME [Concomitant]
     Active Substance: AMPHOTERICIN B
     Indication: PNEUMONIA FUNGAL
     Dosage: 250 MILLIGRAM, QD
     Route: 041
     Dates: start: 20200613, end: 20200710
  9. NOXAFIL [Suspect]
     Active Substance: POSACONAZOLE
     Indication: PNEUMONIA FUNGAL
     Dosage: 300 MILLIGRAM, BID
     Route: 048
     Dates: start: 20200711, end: 20200711

REACTIONS (2)
  - Tubulointerstitial nephritis [Unknown]
  - Renal impairment [Recovering/Resolving]

NARRATIVE: CASE EVENT DATE: 20200713
